FAERS Safety Report 19276201 (Version 1)
Quarter: 2021Q2

REPORT INFORMATION
  Report Type: Spontaneous
  Country: US (occurrence: US)
  Receive Date: 20210519
  Receipt Date: 20210519
  Transmission Date: 20210717
  Serious: No
  Sender: FDA-Public Use
  Company Number: US-SA-2021SA144765

PATIENT
  Sex: Female

DRUGS (3)
  1. ALLEGRA ALLERGY [Suspect]
     Active Substance: FEXOFENADINE HYDROCHLORIDE
     Indication: RASH PRURITIC
  2. ALLEGRA ALLERGY [Suspect]
     Active Substance: FEXOFENADINE HYDROCHLORIDE
     Indication: RASH ERYTHEMATOUS
     Dosage: 180 MG, ONCE DAILY, QD
     Route: 065
  3. ALLEGRA ALLERGY [Suspect]
     Active Substance: FEXOFENADINE HYDROCHLORIDE
     Indication: URTICARIA

REACTIONS (7)
  - Ear pruritus [Unknown]
  - Renal cyst [Unknown]
  - Pain [Unknown]
  - Discomfort [Unknown]
  - Mitral valve disease [Unknown]
  - Inappropriate schedule of product administration [Unknown]
  - Inflammation [Unknown]
